FAERS Safety Report 10293344 (Version 2)
Quarter: 2014Q3

REPORT INFORMATION
  Report Type: Spontaneous
  Country: UY (occurrence: UY)
  Receive Date: 20140710
  Receipt Date: 20140807
  Transmission Date: 20150326
  Serious: Yes (Hospitalization)
  Sender: FDA-Public Use
  Company Number: UY-GLAXOSMITHKLINE-A1080650A

PATIENT
  Age: 48 Year
  Sex: Male

DRUGS (3)
  1. TOPIRAMATE. [Concomitant]
     Active Substance: TOPIRAMATE
  2. ESZOPICLONE. [Concomitant]
     Active Substance: ESZOPICLONE
  3. WELLBUTRIN XL [Suspect]
     Active Substance: BUPROPION HYDROCHLORIDE
     Indication: DEPRESSION
     Dosage: 150MG PER DAY
     Route: 048
     Dates: start: 20140610

REACTIONS (1)
  - Vasculitis [Recovering/Resolving]
